FAERS Safety Report 4879587-0 (Version None)
Quarter: 2006Q1

REPORT INFORMATION
  Report Type: 
  Country: None (occurrence: None)
  Receive Date: 20060113
  Receipt Date: 20030530
  Transmission Date: 20060701
  Serious: Yes (Other)
  Sender: FDA-Public Use
  Company Number: US-BRISTOL-MYERS SQUIBB COMPANY-12289963

PATIENT
  Sex: Female
  Weight: 4 kg

DRUGS (1)
  1. CISPLATIN [Suspect]
     Route: 051

REACTIONS (4)
  - ACCIDENTAL EXPOSURE [None]
  - JAUNDICE NEONATAL [None]
  - NORMAL NEWBORN [None]
  - PREGNANCY [None]
